FAERS Safety Report 13159124 (Version 6)
Quarter: 2021Q2

REPORT INFORMATION
  Report Type: Report from Study
  Country: BR (occurrence: BR)
  Receive Date: 20170127
  Receipt Date: 20210609
  Transmission Date: 20210716
  Serious: Yes (Other)
  Sender: FDA-Public Use
  Company Number: PHHY2016BR172024

PATIENT
  Sex: Female
  Weight: 56 kg

DRUGS (10)
  1. FINGOLIMOD HYDROCHLORIDE [Concomitant]
     Active Substance: FINGOLIMOD HYDROCHLORIDE
     Indication: PRODUCT USED FOR UNKNOWN INDICATION
     Dosage: UNK, STARTED BEGINING OF 2020
     Route: 065
  2. NARAMIG [Concomitant]
     Active Substance: NARATRIPTAN HYDROCHLORIDE
     Indication: PRODUCT USED FOR UNKNOWN INDICATION
     Dosage: UNK
     Route: 065
  3. GILENYA [Suspect]
     Active Substance: FINGOLIMOD HYDROCHLORIDE
     Indication: MULTIPLE SCLEROSIS
     Dosage: UNK
     Route: 065
     Dates: start: 20110311
  4. OMEGA 3 [Concomitant]
     Active Substance: OMEGA-3 FATTY ACIDS
     Indication: PRODUCT USED FOR UNKNOWN INDICATION
     Dosage: UNK, QD
     Route: 065
  5. GILENYA [Suspect]
     Active Substance: FINGOLIMOD HYDROCHLORIDE
     Dosage: 0.5 MG, QD
     Route: 048
     Dates: start: 201203
  6. GILENYA [Suspect]
     Active Substance: FINGOLIMOD HYDROCHLORIDE
     Dosage: UNK (NEW PACKING) (28 TABLETS)
     Route: 048
  7. TORSILAX [Concomitant]
     Active Substance: ACETAMINOPHEN\CAFFEINE\CARISOPRODOL\DICLOFENAC
     Indication: HEADACHE
     Dosage: UNK
     Route: 065
  8. SANDOMIGRAN [Concomitant]
     Active Substance: PIZOTYLINE
     Indication: HEADACHE
     Dosage: UNK
     Route: 065
  9. GILENYA [Suspect]
     Active Substance: FINGOLIMOD HYDROCHLORIDE
     Dosage: UNK, (28 TABLETS)
     Route: 048
  10. DICLIN [Concomitant]
     Indication: OVARIAN CYST
     Dosage: UNK
     Route: 065

REACTIONS (20)
  - Rash macular [Unknown]
  - Eye pain [Unknown]
  - Secretion discharge [Recovered/Resolved]
  - Dark circles under eyes [Unknown]
  - Pain [Unknown]
  - Pallor [Unknown]
  - Haemangioma of liver [Not Recovered/Not Resolved]
  - Decreased appetite [Unknown]
  - Pain in extremity [Unknown]
  - Ageusia [Recovered/Resolved]
  - Influenza [Recovered/Resolved]
  - Cough [Recovered/Resolved]
  - Malaise [Unknown]
  - Headache [Not Recovered/Not Resolved]
  - Depression [Unknown]
  - Anosmia [Recovered/Resolved]
  - Concomitant disease aggravated [Unknown]
  - Diarrhoea [Recovering/Resolving]
  - Movement disorder [Unknown]
  - Migraine [Unknown]

NARRATIVE: CASE EVENT DATE: 2014
